FAERS Safety Report 9958840 (Version 1)
Quarter: 2014Q1

REPORT INFORMATION
  Report Type: Report from Study
  Country: US (occurrence: US)
  Receive Date: 20140305
  Receipt Date: 20140305
  Transmission Date: 20141002
  Serious: No
  Sender: FDA-Public Use
  Company Number: US-ABBVIE-13P-163-1104994-00

PATIENT
  Age: 12 Year
  Sex: Male
  Weight: 43.13 kg

DRUGS (4)
  1. HUMIRA [Suspect]
     Indication: CROHN^S DISEASE
     Route: 058
     Dates: start: 2011
  2. PREDNISONE [Concomitant]
     Indication: CONDITION AGGRAVATED
     Dosage: 10MG INITIALLY X2 DAYS, DECREASES TO 5 MG, THEN DOWN ON SLIDING SCALE.
  3. MULTIVITAMIN [Concomitant]
     Indication: PRODUCT USED FOR UNKNOWN INDICATION
     Route: 048
  4. PROBIOTICS [Concomitant]
     Indication: PRODUCT USED FOR UNKNOWN INDICATION

REACTIONS (4)
  - Asperger^s disorder [Not Recovered/Not Resolved]
  - Rash generalised [Recovered/Resolved]
  - Rash [Recovered/Resolved]
  - Streptococcus test positive [Recovered/Resolved]
